FAERS Safety Report 11877444 (Version 2)
Quarter: 2016Q1

REPORT INFORMATION
  Report Type: Spontaneous
  Country: IT (occurrence: IT)
  Receive Date: 20151229
  Receipt Date: 20160204
  Transmission Date: 20160526
  Serious: Yes (Death, Hospitalization, Other)
  Sender: FDA-Public Use
  Company Number: IT-009507513-1512ITA012121

PATIENT
  Age: 68 Year
  Sex: Female

DRUGS (7)
  1. NORMIX [Concomitant]
     Active Substance: RIFAXIMIN
     Dosage: UNK
     Dates: start: 20150303, end: 20150414
  2. VIEKIRAX [Suspect]
     Active Substance: OMBITASVIR\PARITAPREVIR\RITONAVIR
     Indication: CHRONIC HEPATITIS C
     Dosage: 2 POSOLOGICAL UNITS DAILY
     Route: 048
     Dates: start: 20150126, end: 20150414
  3. ETIDRONATE DISODIUM. [Concomitant]
     Active Substance: ETIDRONATE DISODIUM
  4. FUROSEMIDE. [Concomitant]
     Active Substance: FUROSEMIDE
  5. EXVIERA [Suspect]
     Active Substance: DASABUVIR
     Indication: CHRONIC HEPATITIS C
     Dosage: 2 POSOLOGICAL UNITS DAILY
     Route: 048
     Dates: start: 20150126, end: 20150414
  6. REBETOL [Suspect]
     Active Substance: RIBAVIRIN
     Indication: CHRONIC HEPATITIS C
     Dosage: 2 POSOLOGICAL UNITS DAILY
     Route: 048
     Dates: start: 20150126, end: 20150414
  7. CLODRONATE DISODIUM [Concomitant]
     Active Substance: CLODRONATE DISODIUM

REACTIONS (3)
  - Jaundice [Fatal]
  - Ascites [Fatal]
  - Hepatic failure [Fatal]

NARRATIVE: CASE EVENT DATE: 20150414
